FAERS Safety Report 10897801 (Version 1)
Quarter: 2015Q1

REPORT INFORMATION
  Report Type: Spontaneous
  Country: DK (occurrence: DK)
  Receive Date: 20150309
  Receipt Date: 20150309
  Transmission Date: 20150721
  Serious: Yes (Other)
  Sender: FDA-Public Use
  Company Number: DK-WATSON-2015-04232

PATIENT
  Age: 44 Year
  Sex: Female
  Weight: 58 kg

DRUGS (1)
  1. TETRACYCLIN ACTAVIS [Suspect]
     Active Substance: TETRACYCLINE
     Indication: ROSACEA
     Dosage: 500 MG, DAILY
     Route: 048
     Dates: start: 20140910, end: 20141215

REACTIONS (2)
  - Amenorrhoea [Recovered/Resolved]
  - Gastric ulcer [Recovered/Resolved]

NARRATIVE: CASE EVENT DATE: 20140915
